FAERS Safety Report 6692358-8 (Version None)
Quarter: 2010Q2

REPORT INFORMATION
  Report Type: 
  Country: None (occurrence: None)
  Receive Date: 20100419
  Receipt Date: 20100413
  Transmission Date: 20101027
  Serious: Yes (Hospitalization)
  Sender: FDA-Public Use
  Company Number: 2009SP020476

PATIENT
  Age: 63 Year
  Sex: Male

DRUGS (6)
  1. PEGINTERFERON ALFA-2A [Suspect]
     Indication: HEPATITIS C
     Dosage: 120 MCG; QW; SC
     Route: 058
     Dates: start: 20090330, end: 20090803
  2. RIBAVIRIN [Suspect]
     Indication: HEPATITIS C
     Dosage: 1200 MG; QD; PO
     Route: 048
     Dates: start: 20090330, end: 20090805
  3. ELTROMBOPAG          (ELTROMBOPAG) [Suspect]
     Indication: THROMBOCYTOPENIA
     Dosage: 25 MG; QD; PO, 50 MG; QD; PO
     Route: 048
     Dates: start: 20090223, end: 20090309
  4. ELTROMBOPAG          (ELTROMBOPAG) [Suspect]
     Indication: THROMBOCYTOPENIA
     Dosage: 25 MG; QD; PO, 50 MG; QD; PO
     Route: 048
     Dates: start: 20090310, end: 20090329
  5. BLINDED ELTROMBOPAG (ELTROMBOPAG) [Suspect]
     Indication: THROMBOCYTOPENIA
     Dosage: QD; PO, 100 MG; QD; PO
     Route: 048
     Dates: start: 20090330, end: 20090413
  6. BLINDED ELTROMBOPAG (ELTROMBOPAG) [Suspect]
     Indication: THROMBOCYTOPENIA
     Dosage: QD; PO, 100 MG; QD; PO
     Route: 048
     Dates: start: 20090414, end: 20090805

REACTIONS (12)
  - ANAEMIA [None]
  - ASCITES [None]
  - FATIGUE [None]
  - FLUID RETENTION [None]
  - HAEMORRHOIDS [None]
  - HEPATIC FAILURE [None]
  - INSOMNIA [None]
  - INTERNATIONAL NORMALISED RATIO INCREASED [None]
  - OEDEMA PERIPHERAL [None]
  - PHLEBITIS [None]
  - UMBILICAL HERNIA [None]
  - VARICES OESOPHAGEAL [None]
